FAERS Safety Report 4818557-5 (Version None)
Quarter: 2005Q4

REPORT INFORMATION
  Report Type: 
  Country: None (occurrence: None)
  Receive Date: 20051031
  Receipt Date: 20051021
  Transmission Date: 20060501
  Serious: Yes (Other)
  Sender: FDA-Public Use
  Company Number: 218824

PATIENT
  Age: 44 Year
  Sex: Female
  Weight: 89.1 kg

DRUGS (1)
  1. OMALIZUMAB(OMALIZUMAB) PWDR + SOLVENT,INJECTION SOLN, 150MG [Suspect]
     Indication: ASTHMA
     Dosage: 300 MG, Q4W, SUBCUTANEOUS
     Route: 058
     Dates: start: 20050114, end: 20050715

REACTIONS (1)
  - DERMATITIS [None]
